FAERS Safety Report 7166179-6 (Version None)
Quarter: 2010Q4

REPORT INFORMATION
  Report Type: 
  Country: None (occurrence: None)
  Receive Date: 20101202
  Receipt Date: 20101119
  Transmission Date: 20110411
  Serious: Yes (Hospitalization)
  Sender: FDA-Public Use
  Company Number: TRP_07406_2010

PATIENT
  Age: 38 Year
  Sex: Male

DRUGS (4)
  1. RIBAVIRIN [Suspect]
     Indication: HEPATITIS C
     Dosage: (DF [DAILY WEIGHT BASED])
  2. PEGINTERFERON ALFA-2A [Suspect]
     Indication: HEPATITIS C
     Dosage: (270-360 MCG/WEEK)
  3. PEG-INTRON [Suspect]
     Indication: HEPATITIS C
     Dosage: 2.0-3.0 MCG/KG/WEEK)
  4. PEG-INTRON [Suspect]
     Indication: HEPATITIS C
     Dosage: (DF)

REACTIONS (1)
  - MENINGITIS [None]
